FAERS Safety Report 6331940-4 (Version None)
Quarter: 2009Q3

REPORT INFORMATION
  Report Type: 
  Country: None (occurrence: None)
  Receive Date: 20090828
  Receipt Date: 20090824
  Transmission Date: 20100115
  Serious: Yes (Other)
  Sender: FDA-Public Use
  Company Number: US-JNJCH-2009022933

PATIENT
  Sex: Female
  Weight: 67.1 kg

DRUGS (7)
  1. BENADRYL [Suspect]
     Indication: ANAESTHESIA
     Dosage: TEXT:ONCE
     Route: 042
     Dates: start: 20051101, end: 20051101
  2. GLUCOTROL XL [Concomitant]
     Indication: DIABETES MELLITUS
     Dosage: TEXT:20 MG 4 X DAY
     Route: 065
  3. INSULIN [Concomitant]
     Indication: DIABETES MELLITUS
     Dosage: TEXT:3-7 MILLIU IF NEEDED
     Route: 065
  4. L-THYROXIN [Concomitant]
     Indication: DRUG USE FOR UNKNOWN INDICATION
     Dosage: TEXT:25 MCG ONCE A DAY
     Route: 065
  5. NEXIUM [Concomitant]
     Indication: ABDOMINAL PAIN UPPER
     Dosage: TEXT:WHEN NEEDED
     Route: 065
  6. IMMUNOGLOBULINS [Concomitant]
     Indication: DRUG USE FOR UNKNOWN INDICATION
     Dosage: TEXT:35 GRAMS EVERY 3 WEEKS
     Route: 065
  7. XANAX [Concomitant]
     Indication: TACHYCARDIA
     Dosage: TEXT:0.5 MG ONCE
     Route: 065

REACTIONS (2)
  - HYPERSENSITIVITY [None]
  - TACHYCARDIA [None]
